FAERS Safety Report 4360719-8 (Version None)
Quarter: 2004Q2

REPORT INFORMATION
  Report Type: 
  Country: None (occurrence: None)
  Receive Date: 20040520
  Receipt Date: 20030707
  Transmission Date: 20050107
  Serious: No
  Sender: FDA-Public Use
  Company Number: US-GLAXOSMITHKLINE-A0415412A

PATIENT
  Age: 75 Year
  Sex: Male

DRUGS (2)
  1. LANOXICAPS [Suspect]
     Indication: CARDIAC FIBRILLATION
     Dosage: .2MG TWICE PER DAY
     Route: 048
     Dates: start: 19970101
  2. VERAPAMIL [Concomitant]

REACTIONS (1)
  - WEIGHT DECREASED [None]
